FAERS Safety Report 11879181 (Version 6)
Quarter: 2016Q2

REPORT INFORMATION
  Report Type: Spontaneous
  Country: US (occurrence: US)
  Receive Date: 20151230
  Receipt Date: 20160519
  Transmission Date: 20160815
  Serious: Yes (Other)
  Sender: FDA-Public Use
  Company Number: US-PFIZER INC-2015450547

PATIENT
  Age: 48 Year
  Sex: Female
  Weight: 63 kg

DRUGS (5)
  1. TRAMADOL. [Concomitant]
     Active Substance: TRAMADOL
     Dosage: 100 MG, 2X/DAY
     Route: 048
     Dates: start: 201103
  2. LYRICA [Suspect]
     Active Substance: PREGABALIN
     Dosage: 150 MG, 2X/DAY
     Route: 048
     Dates: end: 201509
  3. LYRICA [Suspect]
     Active Substance: PREGABALIN
     Indication: FIBROMYALGIA
     Dosage: 150 MG, 3X/DAY
     Route: 048
     Dates: start: 200904
  4. MELOXICAM. [Concomitant]
     Active Substance: MELOXICAM
     Dosage: 15 MG, 1X/DAY
     Dates: start: 201103
  5. LYRICA [Suspect]
     Active Substance: PREGABALIN
     Dosage: UNK

REACTIONS (16)
  - Condition aggravated [Not Recovered/Not Resolved]
  - Drug withdrawal syndrome [Unknown]
  - Lethargy [Unknown]
  - Pain [Not Recovered/Not Resolved]
  - Panic disorder [Unknown]
  - Dyspnoea [Unknown]
  - Musculoskeletal discomfort [Recovered/Resolved]
  - Hyperhidrosis [Unknown]
  - Thinking abnormal [Unknown]
  - Weight increased [Unknown]
  - Delirium [Unknown]
  - Palpitations [Unknown]
  - Chills [Unknown]
  - Activities of daily living impaired [Unknown]
  - Impaired work ability [Recovered/Resolved]
  - Drug prescribing error [Unknown]

NARRATIVE: CASE EVENT DATE: 200904
